FAERS Safety Report 6236374-9 (Version None)
Quarter: 2009Q2

REPORT INFORMATION
  Report Type: 
  Country: None (occurrence: None)
  Receive Date: 20090619
  Receipt Date: 20090612
  Transmission Date: 20091009
  Serious: Yes (Hospitalization, Other)
  Sender: FDA-Public Use
  Company Number: US-AMGEN-US348576

PATIENT
  Sex: Male
  Weight: 100.7 kg

DRUGS (23)
  1. NPLATE [Suspect]
     Indication: IDIOPATHIC THROMBOCYTOPENIC PURPURA
     Route: 058
     Dates: start: 20081112, end: 20090417
  2. NPLATE [Suspect]
     Route: 058
     Dates: start: 20090107, end: 20090114
  3. NPLATE [Suspect]
     Route: 058
     Dates: start: 20090114, end: 20090206
  4. NPLATE [Suspect]
     Route: 058
     Dates: start: 20090213, end: 20090227
  5. NPLATE [Suspect]
     Dates: start: 20090306, end: 20090313
  6. NPLATE [Suspect]
     Route: 058
     Dates: start: 20090320, end: 20090410
  7. NPLATE [Suspect]
     Route: 058
     Dates: start: 20090417, end: 20090417
  8. PREDNISONE TAB [Concomitant]
     Dates: start: 20081001
  9. LASIX [Concomitant]
     Dates: start: 20090301
  10. SPIRONOLACTONE [Concomitant]
     Dates: start: 20090301
  11. PANCREASE [Concomitant]
     Dates: start: 20090401
  12. MAGNESIUM OXIDE [Concomitant]
     Dates: start: 20081215
  13. TACROLIMUS [Concomitant]
     Dates: start: 20000101
  14. NORVASC [Concomitant]
     Dates: start: 20000101
  15. PRILOSEC [Concomitant]
     Dates: start: 20070101
  16. CENTRUM [Concomitant]
     Dates: start: 20070101
  17. INSULIN [Concomitant]
     Dates: start: 20080101
  18. WINRHO [Concomitant]
     Route: 042
     Dates: start: 20081201
  19. SOLU-MEDROL [Concomitant]
     Route: 042
     Dates: start: 20081201
  20. VINBLASTINE SULFATE [Concomitant]
     Dates: start: 20081201
  21. VITAMIN K [Concomitant]
     Dates: start: 20081201
  22. GEMFIBROZIL [Concomitant]
  23. LAMIVUDINE [Concomitant]

REACTIONS (12)
  - DIARRHOEA [None]
  - HEPATIC ENZYME INCREASED [None]
  - HEPATIC VEIN THROMBOSIS [None]
  - HYPOMAGNESAEMIA [None]
  - MALAISE [None]
  - MESENTERIC VEIN THROMBOSIS [None]
  - OEDEMA PERIPHERAL [None]
  - PANCREATITIS [None]
  - PORTAL VEIN THROMBOSIS [None]
  - PULMONARY EMBOLISM [None]
  - THROMBOCYTHAEMIA [None]
  - THROMBOCYTOPENIA [None]
